FAERS Safety Report 16880610 (Version 2)
Quarter: 2020Q4

REPORT INFORMATION
  Report Type: Spontaneous
  Country: CA (occurrence: CA)
  Receive Date: 20191003
  Receipt Date: 20201007
  Transmission Date: 20210113
  Serious: Yes (Death)
  Sender: FDA-Public Use
  Company Number: CA-ROCHE-2420129

PATIENT
  Age: 68 Year
  Sex: Male
  Weight: 89 kg

DRUGS (20)
  1. TAMSULOSIN [Concomitant]
     Active Substance: TAMSULOSIN
  2. VENLAFAXINE XR [Suspect]
     Active Substance: VENLAFAXINE HYDROCHLORIDE
     Route: 065
  3. ATENOLOL. [Concomitant]
     Active Substance: ATENOLOL
  4. TRAZODONE [Concomitant]
     Active Substance: TRAZODONE HYDROCHLORIDE
  5. JANUVIA [Concomitant]
     Active Substance: SITAGLIPTIN PHOSPHATE
  6. VENLAFAXINE XR [Suspect]
     Active Substance: VENLAFAXINE HYDROCHLORIDE
     Indication: DEPRESSION
     Route: 065
  7. GLUCOPHAGE [Concomitant]
     Active Substance: METFORMIN HYDROCHLORIDE
  8. ESBRIET [Suspect]
     Active Substance: PIRFENIDONE
     Indication: IDIOPATHIC PULMONARY FIBROSIS
     Route: 048
  9. METFORMIN [Suspect]
     Active Substance: METFORMIN HYDROCHLORIDE
     Indication: PRODUCT USED FOR UNKNOWN INDICATION
     Route: 048
  10. MUPIROCIN. [Concomitant]
     Active Substance: MUPIROCIN
  11. ROSUVASTATIN. [Concomitant]
     Active Substance: ROSUVASTATIN
  12. CARBIDOPA/LEVODOPA [Concomitant]
     Active Substance: CARBIDOPA\LEVODOPA
  13. ESBRIET [Suspect]
     Active Substance: PIRFENIDONE
     Indication: IDIOPATHIC PULMONARY FIBROSIS
     Route: 048
  14. PANTOPRAZOLE [Concomitant]
     Active Substance: PANTOPRAZOLE
  15. CANDESARTAN. [Concomitant]
     Active Substance: CANDESARTAN
  16. GLICLAZIDE [Concomitant]
     Active Substance: GLICLAZIDE
  17. EZETROL [Concomitant]
     Active Substance: EZETIMIBE
  18. OXAZEPAM. [Concomitant]
     Active Substance: OXAZEPAM
  19. SITAGLIPTIN PHOSPHATE [Concomitant]
     Active Substance: SITAGLIPTIN PHOSPHATE
  20. DEXAMETHASONE. [Concomitant]
     Active Substance: DEXAMETHASONE

REACTIONS (25)
  - Decreased appetite [Fatal]
  - Drug ineffective [Fatal]
  - Hyperkalaemia [Fatal]
  - Neck pain [Fatal]
  - Depression [Fatal]
  - Dizziness [Fatal]
  - Oxygen saturation decreased [Fatal]
  - Pneumonia [Fatal]
  - Skin discolouration [Fatal]
  - Weight decreased [Fatal]
  - Abdominal pain [Fatal]
  - Asthenia [Fatal]
  - Pain of skin [Fatal]
  - Anxiety [Fatal]
  - Dysphagia [Fatal]
  - Hypophagia [Fatal]
  - Diarrhoea [Fatal]
  - Dyspnoea [Fatal]
  - Exercise tolerance decreased [Fatal]
  - Musculoskeletal pain [Fatal]
  - Herpes zoster [Fatal]
  - Nephrolithiasis [Fatal]
  - Food aversion [Fatal]
  - Gastric disorder [Fatal]
  - Nausea [Fatal]
